FAERS Safety Report 10749485 (Version 2)
Quarter: 2015Q2

REPORT INFORMATION
  Report Type: Spontaneous
  Country: US (occurrence: US)
  Receive Date: 20150129
  Receipt Date: 20150515
  Transmission Date: 20150821
  Serious: Yes (Death, Hospitalization, Other)
  Sender: FDA-Public Use
  Company Number: US-PFIZER INC-2015034765

PATIENT
  Age: 55 Year
  Sex: Male

DRUGS (3)
  1. TESTRED [Suspect]
     Active Substance: METHYLTESTOSTERONE
     Indication: HORMONE REPLACEMENT THERAPY
     Dosage: UNK, DAILY
     Dates: end: 2009
  2. TESTOSTERONE CIPIONATE [Suspect]
     Active Substance: TESTOSTERONE
     Indication: HORMONE REPLACEMENT THERAPY
  3. TESTOSTERONE CIPIONATE [Suspect]
     Active Substance: TESTOSTERONE
     Indication: BLOOD TESTOSTERONE DECREASED
     Dosage: UNK, EVERY 2 WEEKS
     Dates: start: 2013, end: 20140124

REACTIONS (3)
  - Cerebrovascular accident [Fatal]
  - Respiratory failure [Fatal]
  - Cardiovascular disorder [Fatal]

NARRATIVE: CASE EVENT DATE: 20140124
